FAERS Safety Report 5680927-3 (Version None)
Quarter: 2008Q1

REPORT INFORMATION
  Report Type: 
  Country: None (occurrence: None)
  Receive Date: 20080325
  Receipt Date: 20080319
  Transmission Date: 20080703
  Serious: Yes (Death, Hospitalization, Other)
  Sender: FDA-Public Use
  Company Number: 163-21880-08031188

PATIENT
  Age: 64 Year
  Sex: Female

DRUGS (9)
  1. REVLIMID [Suspect]
     Indication: MULTIPLE MYELOMA
     Dosage: 25 MG, 1 IN 1 D, ORAL
     Route: 048
     Dates: start: 20080219, end: 20080317
  2. NISOLDIPINE (NISOLDIPINE) [Concomitant]
  3. METHOCARBAMOL [Concomitant]
  4. POTASSIUM CHLORIDE [Concomitant]
  5. MORPHINE SULFATE [Concomitant]
  6. GABAPENTIN [Concomitant]
  7. ALBUTEROL [Concomitant]
  8. MAGNESIUM (MAGNESIUM) [Concomitant]
  9. NEXIUM [Concomitant]

REACTIONS (1)
  - CARDIO-RESPIRATORY ARREST [None]
